FAERS Safety Report 7216268-2 (Version None)
Quarter: 2011Q1

REPORT INFORMATION
  Report Type: 
  Country: None (occurrence: None)
  Receive Date: 20110107
  Receipt Date: 20101217
  Transmission Date: 20110831
  Serious: No
  Sender: FDA-Public Use
  Company Number: US-B.I. PHARMACEUTICALS,INC./RIDGEFIELD-2010-BP-15104BP

PATIENT
  Age: 57 Year
  Sex: Male

DRUGS (5)
  1. METOPROLOL TARTRATE [Concomitant]
  2. PRADAXA [Suspect]
     Indication: ATRIAL FIBRILLATION
     Dosage: 300 MG
     Route: 048
     Dates: start: 20101112
  3. AMIODARONE HCL [Concomitant]
     Indication: HEART RATE ABNORMAL
  4. WELLBUTRIN [Concomitant]
     Indication: SMOKING CESSATION THERAPY
  5. LIPITOR [Concomitant]
     Indication: BLOOD CHOLESTEROL INCREASED

REACTIONS (4)
  - CHOKING [None]
  - COUGH [None]
  - ERUCTATION [None]
  - RHINORRHOEA [None]
